FAERS Safety Report 5857386-0 (Version None)
Quarter: 2008Q3

REPORT INFORMATION
  Report Type: 
  Country: None (occurrence: None)
  Receive Date: 20080825
  Receipt Date: 20080825
  Transmission Date: 20090109
  Serious: No
  Sender: FDA-Public Use
  Company Number: None

PATIENT
  Age: 20 Year
  Sex: Female
  Weight: 74 kg

DRUGS (1)
  1. IMOGAM RABIES [Suspect]
     Indication: PROPHYLAXIS
     Dosage: 20 ML. X 1 INTRAOCULAR
     Route: 031
     Dates: start: 20080807, end: 20080807

REACTIONS (2)
  - MEDICATION ERROR [None]
  - PHARMACEUTICAL PRODUCT COMPLAINT [None]
